FAERS Safety Report 24647874 (Version 1)
Quarter: 2024Q4

REPORT INFORMATION
  Report Type: Spontaneous
  Country: IT (occurrence: IT)
  Receive Date: 20241121
  Receipt Date: 20241121
  Transmission Date: 20250114
  Serious: Yes (Other)
  Sender: AMGEN
  Company Number: IT-AMGEN-ITASP2024226288

PATIENT
  Age: 53 Year
  Sex: Male
  Weight: 90 kg

DRUGS (10)
  1. OTEZLA [Suspect]
     Active Substance: APREMILAST
     Indication: Psoriatic arthropathy
     Dosage: 30 MILLIGRAM, BID
     Route: 048
  2. PANTOPRAZOLE SODIUM [Concomitant]
     Active Substance: PANTOPRAZOLE SODIUM
     Indication: Chronic gastritis
     Dosage: PEPTAZOL 20 MG TABLETS 1 TABLET/DAY
     Route: 048
  3. OMEGA-3 FATTY ACIDS [Concomitant]
     Active Substance: OMEGA-3 FATTY ACIDS
     Indication: Hypertriglyceridaemia
     Dosage: ESKIM 1000 MG SOFT CAPSULES 1 CAPSULE/DAY
     Route: 048
  4. Aurozeb [Concomitant]
     Indication: Hypercholesterolaemia
     Dosage: AUROZEB 10 MG/10 MG FILM-COATED TABLETS 1 TABLET/DAY
     Route: 048
  5. RAMIPRIL [Concomitant]
     Active Substance: RAMIPRIL
     Indication: Hypertension
     Dosage: QUARK 10 MG TABLETS 1 TABLET/DAY
     Route: 048
  6. METFORMIN HYDROCHLORIDE [Concomitant]
     Active Substance: METFORMIN HYDROCHLORIDE
     Indication: Type 2 diabetes mellitus
     Dosage: METFORAL 850 MG COATED TABLETS 1 TABLET/DAY
     Route: 048
  7. COMPETACT [Concomitant]
     Active Substance: METFORMIN HYDROCHLORIDE\PIOGLITAZONE HYDROCHLORIDE
     Indication: Type 2 diabetes mellitus
     Dosage: COMPETACT 15MG/850MG COATED TABLETS 1 TABLET/DAY
     Route: 048
  8. TICHE [Concomitant]
     Indication: Hypothyroidism
     Dosage: TICHE SOFT CAPSULES 88MCG 1 TABLET/DAY
     Route: 048
  9. ASPIRIN [Concomitant]
     Active Substance: ASPIRIN
     Indication: Prophylaxis
     Dosage: CARDIOASPIRIN 100 MG GASTRO-RESISTANT TABLETS 1 TABLET/DAY
     Route: 048
  10. Zoripot [Concomitant]
     Indication: Psoriasis
     Dosage: 1 APPLICATION IN THE EVENING
     Route: 061

REACTIONS (2)
  - Psoriatic arthropathy [Unknown]
  - Therapeutic product effect decreased [Unknown]

NARRATIVE: CASE EVENT DATE: 20240423
